FAERS Safety Report 15418260 (Version 2)
Quarter: 2018Q4

REPORT INFORMATION
  Report Type: Spontaneous
  Country: US (occurrence: US)
  Receive Date: 20180924
  Receipt Date: 20181026
  Transmission Date: 20190204
  Serious: Yes (Other)
  Sender: FDA-Public Use
  Company Number: US-ALLERGAN-1845929US

PATIENT
  Age: 82 Year
  Sex: Female

DRUGS (1)
  1. DALVANCE [Suspect]
     Active Substance: DALBAVANCIN
     Indication: PRODUCT USED FOR UNKNOWN INDICATION
     Dosage: ACTUAL: INFUSION WAS CONTINUED ONLY FOR 2 MINUTES (PRESCRIBED INFUSION DURATION WAS 30 MINUTES)
     Route: 042
     Dates: start: 201809, end: 201809

REACTIONS (2)
  - Blood pressure increased [Unknown]
  - Loss of consciousness [Recovered/Resolved]

NARRATIVE: CASE EVENT DATE: 201809
